FAERS Safety Report 6019892-8 (Version None)
Quarter: 2008Q4

REPORT INFORMATION
  Report Type: 
  Country: None (occurrence: None)
  Receive Date: 20081222
  Receipt Date: 20081216
  Transmission Date: 20090506
  Serious: Yes (Hospitalization)
  Sender: FDA-Public Use
  Company Number: SPV1-2008-02772

PATIENT
  Age: 26 Year
  Sex: Male

DRUGS (8)
  1. ADDERALL 10 [Suspect]
     Indication: ATTENTION DEFICIT/HYPERACTIVITY DISORDER
     Dosage: 80 MG, 1X/DAY;QD, ORAL; 50 MG, 1X/DAY:QD, ORAL; 3.75 MG, 1X/DAY;QD, ORAL
     Route: 048
     Dates: start: 19990101, end: 20060101
  2. ADDERALL 10 [Suspect]
     Indication: ATTENTION DEFICIT/HYPERACTIVITY DISORDER
     Dosage: 80 MG, 1X/DAY;QD, ORAL; 50 MG, 1X/DAY:QD, ORAL; 3.75 MG, 1X/DAY;QD, ORAL
     Route: 048
     Dates: start: 20080101, end: 20081001
  3. ADDERALL 10 [Suspect]
     Indication: ATTENTION DEFICIT/HYPERACTIVITY DISORDER
     Dosage: 80 MG, 1X/DAY;QD, ORAL; 50 MG, 1X/DAY:QD, ORAL; 3.75 MG, 1X/DAY;QD, ORAL
     Route: 048
     Dates: start: 20081001
  4. XANAX [Suspect]
  5. VYVANSE (LISDEXAMFETAMINE DIMESYYLATE) [Concomitant]
  6. ZYPREXA [Concomitant]
  7. LAMICTAL [Concomitant]
  8. CELEXA /00582602/ (CITALOPRAM HYDROBROMIDE) [Concomitant]

REACTIONS (9)
  - ANXIETY [None]
  - DEPRESSION [None]
  - DRUG INEFFECTIVE [None]
  - FEAR [None]
  - INCORRECT DOSE ADMINISTERED [None]
  - OVERDOSE [None]
  - PANIC ATTACK [None]
  - SUICIDE ATTEMPT [None]
  - TREMOR [None]
